FAERS Safety Report 5268735-9 (Version None)
Quarter: 2007Q1

REPORT INFORMATION
  Report Type: 
  Country: None (occurrence: None)
  Receive Date: 20070315
  Receipt Date: 20070315
  Transmission Date: 20070707
  Serious: Yes (Other)
  Sender: FDA-Public Use
  Company Number: None

PATIENT
  Age: 39 Year
  Sex: Female
  Weight: 95.2554 kg

DRUGS (4)
  1. ABILIFY [Suspect]
     Indication: BIPOLAR DISORDER
     Dosage: 15 MG DAILY PO
     Route: 048
     Dates: start: 20070221, end: 20070306
  2. TEGRETOL [Concomitant]
  3. PROZAC [Concomitant]
  4. VALIUM [Concomitant]

REACTIONS (5)
  - DIARRHOEA [None]
  - DRUG INTOLERANCE [None]
  - INFLUENZA LIKE ILLNESS [None]
  - NAUSEA [None]
  - PHARYNGEAL OEDEMA [None]
